FAERS Safety Report 17579776 (Version 2)
Quarter: 2021Q1

REPORT INFORMATION
  Report Type: Report from Study
  Country: JP (occurrence: JP)
  Receive Date: 20200325
  Receipt Date: 20210113
  Transmission Date: 20210419
  Serious: Yes (Hospitalization)
  Sender: FDA-Public Use
  Company Number: JP-ROCHE-2571324

PATIENT
  Age: 69 Year
  Sex: Female
  Weight: 63.2 kg

DRUGS (2)
  1. PERTUZUMAB. [Suspect]
     Active Substance: PERTUZUMAB
     Indication: NEOPLASM
     Dosage: THE 13 AND 14TH CYCLE
     Route: 041
     Dates: start: 20190531, end: 20200120
  2. TRASTUZUMAB. [Suspect]
     Active Substance: TRASTUZUMAB
     Indication: NEOPLASM
     Dosage: THE 13 AND 14TH CYCLE
     Route: 041
     Dates: start: 20190531, end: 20200120

REACTIONS (1)
  - Lymphoedema [Recovering/Resolving]

NARRATIVE: CASE EVENT DATE: 20190912
